FAERS Safety Report 5809017-3 (Version None)
Quarter: 2008Q3

REPORT INFORMATION
  Report Type: 
  Country: None (occurrence: None)
  Receive Date: 20080714
  Receipt Date: 20080710
  Transmission Date: 20090109
  Serious: Yes (Death, Other)
  Sender: FDA-Public Use
  Company Number: ES-BRISTOL-MYERS SQUIBB COMPANY-14256218

PATIENT
  Age: 79 Year
  Sex: Male

DRUGS (5)
  1. SINEMET CR [Suspect]
     Dosage: 1 DOSAGE FORM = 25/250MG; 100 TABS; 1.5 FD
     Route: 048
     Dates: start: 20060425
  2. STALEVO 100 [Interacting]
     Dosage: 1 DOSAGE FORM = 50MG/12.5MG/200MG; 100 COATED TABLETS
     Route: 048
     Dates: start: 20070510
  3. EXELON [Interacting]
     Dosage: 3 MG 28CAPS
     Route: 048
     Dates: start: 20050728
  4. MADOPAR [Interacting]
     Dosage: 1 DOSAGE FORM = 1 FD
     Route: 048
     Dates: start: 20050728
  5. MIRAPEXIN [Interacting]
     Dosage: MIRAXIPIME 0.18MG 30 TABS;MIRAXIPIME 0.7MG 30TABS STARTED ON 22JUN07 (1.05MG) PO
     Route: 048
     Dates: start: 20070622

REACTIONS (2)
  - DRUG INTERACTION [None]
  - GASTROINTESTINAL HAEMORRHAGE [None]
